FAERS Safety Report 25954448 (Version 2)
Quarter: 2025Q4

REPORT INFORMATION
  Report Type: Spontaneous
  Country: JP (occurrence: JP)
  Receive Date: 20251024
  Receipt Date: 20251205
  Transmission Date: 20260118
  Serious: No
  Sender: AMGEN
  Company Number: JP-KYOWAKIRIN-2025KK020172

PATIENT

DRUGS (3)
  1. PEGFILGRASTIM [Suspect]
     Active Substance: PEGFILGRASTIM
     Indication: Colony stimulating factor therapy
     Dosage: UNK
     Route: 058
     Dates: start: 20251009
  2. JEVTANA [Concomitant]
     Active Substance: CABAZITAXEL
     Indication: Product used for unknown indication
     Dosage: 25 MG/M2
     Route: 065
     Dates: start: 20251007, end: 20251007
  3. JEVTANA [Concomitant]
     Active Substance: CABAZITAXEL
     Dosage: THE PLAN WAS TO ADMINISTER JEVTANA AT 30 MG (EQUIVALENT TO 20 MG/M2)
     Route: 065

REACTIONS (1)
  - Colony stimulating factor therapy [Unknown]

NARRATIVE: CASE EVENT DATE: 20251014
